FAERS Safety Report 5952580-2 (Version None)
Quarter: 2008Q4

REPORT INFORMATION
  Report Type: 
  Country: None (occurrence: None)
  Receive Date: 20081029
  Receipt Date: 20080220
  Transmission Date: 20090506
  Serious: Yes (Life-Threatening, Hospitalization, Other)
  Sender: FDA-Public Use
  Company Number: 45428

PATIENT
  Age: 61 Year
  Sex: Male

DRUGS (3)
  1. METHOTREXATE [Suspect]
     Indication: RHEUMATOID ARTHRITIS
     Dosage: 7.5MG SUBCUTANEOUSLY WEEKLY
     Route: 058
  2. PREDNISONE TAB [Concomitant]
  3. WYGESIC [Concomitant]

REACTIONS (1)
  - SKIN DISORDER [None]
